FAERS Safety Report 4612790-3 (Version None)
Quarter: 2005Q1

REPORT INFORMATION
  Report Type: 
  Country: None (occurrence: None)
  Receive Date: 20050318
  Receipt Date: 20050316
  Transmission Date: 20050727
  Serious: Yes (Other)
  Sender: FDA-Public Use
  Company Number: PHBS2005BR03829

PATIENT
  Age: 31 Year
  Sex: Male
  Weight: 83 kg

DRUGS (4)
  1. LEPONEX [Suspect]
     Indication: ANXIETY
     Dosage: 25 MG, UNK
     Route: 048
  2. LEPONEX [Suspect]
     Dosage: 300 MG, QHS
     Route: 048
  3. SYNTHROID [Concomitant]
     Indication: HYPOTHYROIDISM
     Dosage: 75 UG, QD
     Route: 048
  4. RIVOTRIL [Concomitant]
     Indication: ANXIETY
     Dosage: UNK, BID
     Route: 048

REACTIONS (3)
  - DIZZINESS [None]
  - HUNGER [None]
  - LOSS OF CONSCIOUSNESS [None]
